FAERS Safety Report 16046832 (Version 2)
Quarter: 2019Q2

REPORT INFORMATION
  Report Type: Spontaneous
  Country: US (occurrence: US)
  Receive Date: 20190307
  Receipt Date: 20190513
  Transmission Date: 20190711
  Serious: Yes (Other)
  Sender: FDA-Public Use
  Company Number: US-PFIZER INC-2019086970

PATIENT
  Age: 72 Year
  Sex: Female
  Weight: 79.38 kg

DRUGS (9)
  1. OMEPRAZOLE. [Concomitant]
     Active Substance: OMEPRAZOLE
     Dosage: 40 MG, 1X/DAY
     Route: 048
     Dates: start: 20180121
  2. BIOTIN [Concomitant]
     Active Substance: BIOTIN
     Indication: SKIN DISORDER
  3. CHANTIX [Suspect]
     Active Substance: VARENICLINE TARTRATE
     Indication: SMOKING CESSATION THERAPY
     Dosage: 1 MG, 2X/DAY (ONE IN MORNING AND ONE IN THE EVENING)
     Route: 048
     Dates: start: 201902
  4. BIOTIN [Concomitant]
     Active Substance: BIOTIN
     Indication: HAIR DISORDER
     Dosage: 5000 UG, UNK
     Dates: start: 20180121
  5. ATORVASTATIN [Concomitant]
     Active Substance: ATORVASTATIN
     Indication: BLOOD CHOLESTEROL INCREASED
     Dosage: 40 MG, 1X/DAY
     Route: 048
     Dates: start: 20180121
  6. BIOTIN [Concomitant]
     Active Substance: BIOTIN
     Indication: NAIL DISORDER
  7. SYMBICORT [Concomitant]
     Active Substance: BUDESONIDE\FORMOTEROL FUMARATE DIHYDRATE
     Indication: CHRONIC OBSTRUCTIVE PULMONARY DISEASE
     Dosage: 40 MG, 1X/DAY
     Dates: start: 20180121
  8. CALCIUM PLUS D3 [Concomitant]
     Indication: BONE DISORDER
     Dosage: 600 MG, UNK
     Dates: start: 20180121
  9. CELECOXIB. [Concomitant]
     Active Substance: CELECOXIB
     Indication: ARTHRITIS
     Dosage: 200 MG, 1X/DAY
     Route: 048
     Dates: start: 20180121

REACTIONS (7)
  - Dizziness [Unknown]
  - Depressed level of consciousness [Unknown]
  - Insomnia [Unknown]
  - Nausea [Recovering/Resolving]
  - Fatigue [Unknown]
  - Depressed mood [Unknown]
  - Drug ineffective [Unknown]

NARRATIVE: CASE EVENT DATE: 201902
